FAERS Safety Report 17261505 (Version 2)
Quarter: 2020Q1

REPORT INFORMATION
  Report Type: Spontaneous
  Country: US (occurrence: US)
  Receive Date: 20200113
  Receipt Date: 20200324
  Transmission Date: 20200409
  Serious: Yes (Hospitalization, Other)
  Sender: FDA-Public Use
  Company Number: US-GILEAD-2020-0446114

PATIENT
  Age: 43 Year
  Sex: Male
  Weight: 81.18 kg

DRUGS (51)
  1. DAPSONE. [Suspect]
     Active Substance: DAPSONE
     Indication: PRODUCT USED FOR UNKNOWN INDICATION
     Dosage: 25 MG, QD
     Route: 048
  2. DESCOVY [Concomitant]
     Active Substance: EMTRICITABINE\TENOFOVIR ALAFENAMIDE FUMARATE
  3. SYMTUZA [Concomitant]
     Active Substance: COBICISTAT\DARUNAVIR\EMTRICITABINE\TENOFOVIR ALAFENAMIDE
  4. PANTOPRAZOLE [Concomitant]
     Active Substance: PANTOPRAZOLE
  5. LAMIVUDINE. [Concomitant]
     Active Substance: LAMIVUDINE
  6. PREDNISONE. [Concomitant]
     Active Substance: PREDNISONE
  7. SODIUM BICARBONATE. [Concomitant]
     Active Substance: SODIUM BICARBONATE
  8. VENTOLIN [Concomitant]
     Active Substance: ALBUTEROL SULFATE
  9. METRONIDAZOLE. [Concomitant]
     Active Substance: METRONIDAZOLE
  10. PAZEO [Concomitant]
     Active Substance: OLOPATADINE HYDROCHLORIDE
  11. HEPARIN [Concomitant]
     Active Substance: HEPARIN SODIUM
  12. AMLODIPINE [Concomitant]
     Active Substance: AMLODIPINE BESYLATE
  13. TAMSULOSIN [Concomitant]
     Active Substance: TAMSULOSIN
  14. HYDROCODONE BITARTRATE AND ACETAMINOPHEN [Concomitant]
     Active Substance: ACETAMINOPHEN\HYDROCODONE BITARTRATE
  15. TRIUMEQ [Concomitant]
     Active Substance: ABACAVIR SULFATE\DOLUTEGRAVIR SODIUM\LAMIVUDINE
  16. ARIXTRA [Concomitant]
     Active Substance: FONDAPARINUX SODIUM
  17. AMLODIPINE BESYLATE AND BENAZEPRIL HYDROCHLORIDE [Concomitant]
     Active Substance: AMLODIPINE BESYLATE\BENAZEPRIL HYDROCHLORIDE
  18. VIGAMOX [Concomitant]
     Active Substance: MOXIFLOXACIN HYDROCHLORIDE
  19. ENOXAPARIN [Concomitant]
     Active Substance: ENOXAPARIN
  20. BACTRIM [Suspect]
     Active Substance: SULFAMETHOXAZOLE\TRIMETHOPRIM
     Indication: PRODUCT USED FOR UNKNOWN INDICATION
     Route: 065
  21. CEFUROXIME AXETIL. [Concomitant]
     Active Substance: CEFUROXIME AXETIL
  22. VALTREX [Concomitant]
     Active Substance: VALACYCLOVIR HYDROCHLORIDE
  23. ATRIPLA [Suspect]
     Active Substance: EFAVIRENZ\EMTRICITABINE\TENOFOVIR DISOPROXIL FUMARATE
     Indication: HIV INFECTION
     Dosage: UNK
     Route: 048
     Dates: start: 201110, end: 20120309
  24. ABACAVIR. [Concomitant]
     Active Substance: ABACAVIR
  25. WARFARIN [Concomitant]
     Active Substance: WARFARIN
  26. VITAMIN D2 [Concomitant]
     Active Substance: ERGOCALCIFEROL
  27. AZITHROMYCIN ANHYDROUS. [Concomitant]
     Active Substance: AZITHROMYCIN ANHYDROUS
  28. DICLOXACILLIN [Concomitant]
     Active Substance: DICLOXACILLIN
  29. ZIAGEN [Concomitant]
     Active Substance: ABACAVIR SULFATE
  30. RANITIDINE. [Concomitant]
     Active Substance: RANITIDINE
  31. BENICAR [Suspect]
     Active Substance: OLMESARTAN MEDOXOMIL
     Indication: PRODUCT USED FOR UNKNOWN INDICATION
     Dosage: 20 MG, QD
     Route: 048
  32. PREZCOBIX [Concomitant]
     Active Substance: COBICISTAT\DARUNAVIR ETHANOLATE
  33. SUSTIVA [Concomitant]
     Active Substance: EFAVIRENZ
  34. CEPHALEXINE [Concomitant]
     Active Substance: CEPHALEXIN
  35. VALACYCLOVIR HCL [Concomitant]
     Active Substance: VALACYCLOVIR HYDROCHLORIDE
  36. VIAGRA [Concomitant]
     Active Substance: SILDENAFIL CITRATE
  37. CODEINE SULFATE;GUAIFENESIN [Concomitant]
  38. KLOR-CON [Concomitant]
     Active Substance: POTASSIUM CHLORIDE
  39. FLUCONAZOLE. [Concomitant]
     Active Substance: FLUCONAZOLE
  40. NAPROXEN. [Concomitant]
     Active Substance: NAPROXEN
  41. K PHOS NEUTRAL [Concomitant]
     Active Substance: POTASSIUM PHOSPHATE, MONOBASIC\SODIUM PHOSPHATE, DIBASIC, ANHYDROUS\SODIUM PHOSPHATE, MONOBASIC, MONOHYDRATE
  42. LEVAQUIN [Concomitant]
     Active Substance: LEVOFLOXACIN
  43. MECLIZINE HCL [Concomitant]
     Active Substance: MECLIZINE HYDROCHLORIDE
  44. LORAZEPAM. [Concomitant]
     Active Substance: LORAZEPAM
  45. BIKTARVY [Concomitant]
     Active Substance: BICTEGRAVIR SODIUM\EMTRICITABINE\TENOFOVIR ALAFENAMIDE FUMARATE
  46. DOXYCYCLINE. [Concomitant]
     Active Substance: DOXYCYCLINE
  47. CIPROFLOXACIN. [Concomitant]
     Active Substance: CIPROFLOXACIN
  48. TRIFLURIDINE. [Concomitant]
     Active Substance: TRIFLURIDINE
  49. TOBRAMYCIN. [Concomitant]
     Active Substance: TOBRAMYCIN
  50. BENZONATATE. [Concomitant]
     Active Substance: BENZONATATE
  51. NEXIUM I.V. [Concomitant]
     Active Substance: ESOMEPRAZOLE SODIUM

REACTIONS (11)
  - Acute kidney injury [Not Recovered/Not Resolved]
  - Anxiety [Unknown]
  - Diarrhoea [Recovered/Resolved]
  - Pancreatitis [Recovered/Resolved]
  - Anhedonia [Unknown]
  - Economic problem [Unknown]
  - Pain [Unknown]
  - Dehydration [Recovered/Resolved]
  - Vomiting [Recovered/Resolved]
  - Emotional distress [Unknown]
  - Fanconi syndrome acquired [Not Recovered/Not Resolved]

NARRATIVE: CASE EVENT DATE: 201202
